FAERS Safety Report 23429502 (Version 3)
Quarter: 2024Q2

REPORT INFORMATION
  Report Type: Spontaneous
  Country: ES (occurrence: ES)
  Receive Date: 20240122
  Receipt Date: 20240612
  Transmission Date: 20240716
  Serious: Yes (Life-Threatening, Hospitalization)
  Sender: FDA-Public Use
  Company Number: None

PATIENT
  Age: 47 Year
  Sex: Female
  Weight: 63 kg

DRUGS (4)
  1. SULFASALAZINE [Suspect]
     Active Substance: SULFASALAZINE
     Indication: Pelvic girdle pain
     Dosage: 500 MG, 2X/DAY (1 TABLET IN THE MORGNING AND 1 TABLET AT NIGHT DURING FIRST WEEK)
     Route: 048
     Dates: start: 20231113, end: 20231120
  2. SULFASALAZINE [Suspect]
     Active Substance: SULFASALAZINE
     Dosage: 1000 MG, 2X/DAY, EACH 12H,2 TABLETS IN THE MORNING AND 2 AT NIGHT STARTING AT THE SECOND WEEK
     Route: 048
     Dates: start: 20231121, end: 20231204
  3. VIMOVO [Suspect]
     Active Substance: ESOMEPRAZOLE MAGNESIUM\NAPROXEN
     Indication: Pelvic girdle pain
     Dosage: 1 DF, 1X/DAY (AT NIGHT)
     Route: 048
     Dates: start: 20231113, end: 20231204
  4. CALCIFEDIOL [Suspect]
     Active Substance: CALCIFEDIOL
     Indication: Vitamin D decreased
     Dosage: 0.26 MG, 1 MONTHLY
     Dates: start: 20231113

REACTIONS (6)
  - Drug reaction with eosinophilia and systemic symptoms [Recovered/Resolved]
  - Coagulopathy [Recovered/Resolved]
  - Angioedema [Recovered/Resolved]
  - Hepatocellular injury [Recovered/Resolved]
  - Influenza [Unknown]
  - Off label use [Unknown]

NARRATIVE: CASE EVENT DATE: 20231113
